FAERS Safety Report 7564337-X (Version None)
Quarter: 2011Q2

REPORT INFORMATION
  Report Type: 
  Country: None (occurrence: None)
  Receive Date: 20110622
  Receipt Date: 20110609
  Transmission Date: 20111010
  Serious: Yes (Hospitalization, Other)
  Sender: FDA-Public Use
  Company Number: PHHY2011BR50801

PATIENT
  Sex: Female
  Weight: 60 kg

DRUGS (3)
  1. SANDOSTATIN LAR [Suspect]
     Indication: BENIGN NEOPLASM
     Dosage: 30 MG, QMO
  2. SANDOSTATIN LAR [Suspect]
     Dosage: 30 MG, UNK
  3. SANDOSTATIN LAR [Suspect]
     Dosage: 10 MG, QMO

REACTIONS (3)
  - TUMOUR FLARE [None]
  - FALL [None]
  - FEMUR FRACTURE [None]
